FAERS Safety Report 13924752 (Version 1)
Quarter: 2017Q3

REPORT INFORMATION
  Report Type: Spontaneous
  Country: SI (occurrence: SI)
  Receive Date: 20170831
  Receipt Date: 20170831
  Transmission Date: 20171127
  Serious: Yes (Life-Threatening, Hospitalization, Other)
  Sender: FDA-Public Use
  Company Number: SI-JNJFOC-20170827083

PATIENT
  Age: 71 Year
  Sex: Female

DRUGS (12)
  1. BOPACATIN [Suspect]
     Active Substance: CARBOPLATIN
     Indication: OVARIAN CANCER
     Route: 042
     Dates: start: 20170628, end: 20170727
  2. ARCOXIA [Concomitant]
     Active Substance: ETORICOXIB
     Route: 065
  3. AZOPT [Concomitant]
     Active Substance: BRINZOLAMIDE
     Route: 065
  4. ATORIS [Concomitant]
     Active Substance: ATORVASTATIN CALCIUM
     Route: 065
  5. PRENEWEL [Concomitant]
     Active Substance: INDAPAMIDE\PERINDOPRIL ERBUMINE
     Route: 065
  6. ZALDIAR [Concomitant]
     Active Substance: ACETAMINOPHEN\TRAMADOL HYDROCHLORIDE
     Route: 065
  7. CONCOR COR [Concomitant]
     Active Substance: BISOPROLOL FUMARATE
     Route: 065
  8. DETRALEX [Concomitant]
     Active Substance: DIOSMIN\HESPERIDIN
     Route: 065
  9. ASPIRIN PROTECT [Concomitant]
     Active Substance: ASPIRIN
     Route: 065
  10. CAELYX [Suspect]
     Active Substance: DOXORUBICIN HYDROCHLORIDE
     Indication: OVARIAN CANCER
     Route: 042
     Dates: start: 20170628, end: 20170727
  11. XALATAN [Concomitant]
     Active Substance: LATANOPROST
     Route: 065
  12. PRENESSA [Concomitant]
     Active Substance: PERINDOPRIL
     Route: 065

REACTIONS (2)
  - Pulmonary infarction [Unknown]
  - Pulmonary embolism [Unknown]

NARRATIVE: CASE EVENT DATE: 20170807
